FAERS Safety Report 15885449 (Version 7)
Quarter: 2019Q3

REPORT INFORMATION
  Report Type: Report from Study
  Country: DK (occurrence: DK)
  Receive Date: 20190129
  Receipt Date: 20190924
  Transmission Date: 20191004
  Serious: Yes (Other)
  Sender: FDA-Public Use
  Company Number: PHHO2019DK001260

PATIENT
  Age: 78 Year
  Sex: Female
  Weight: 52.7 kg

DRUGS (5)
  1. PLACEBO [Suspect]
     Active Substance: UNSPECIFIED INGREDIENT
     Indication: CARDIAC FAILURE
     Dosage: UNK
     Route: 048
     Dates: start: 20160419, end: 20190122
  2. PLACEBO [Suspect]
     Active Substance: UNSPECIFIED INGREDIENT
     Dosage: UNK
     Route: 048
     Dates: start: 20190128
  3. VALSARTAN. [Suspect]
     Active Substance: VALSARTAN
     Dosage: 160 MG, BID
     Route: 048
     Dates: start: 20190128
  4. VALSARTAN. [Suspect]
     Active Substance: VALSARTAN
     Indication: CARDIAC FAILURE
     Dosage: 160 MG, BID
     Route: 048
     Dates: start: 20160419, end: 20190122
  5. PARACETAMOL [Suspect]
     Active Substance: ACETAMINOPHEN
     Indication: PAIN
     Dosage: 3.99 G, UNK
     Route: 065
     Dates: start: 20180829, end: 20190122

REACTIONS (1)
  - Aspartate aminotransferase increased [Recovered/Resolved]

NARRATIVE: CASE EVENT DATE: 20190121
